FAERS Safety Report 23540155 (Version 2)
Quarter: 2024Q2

REPORT INFORMATION
  Report Type: Spontaneous
  Country: US (occurrence: US)
  Receive Date: 20240219
  Receipt Date: 20240401
  Transmission Date: 20240716
  Serious: No
  Sender: FDA-Public Use
  Company Number: US-ABBVIE-5641940

PATIENT
  Sex: Female

DRUGS (3)
  1. SKYRIZI [Suspect]
     Active Substance: RISANKIZUMAB-RZAA
     Indication: Psoriasis
     Dosage: TIME INTERVAL: TOTAL: INITIAL DOSE?FORM STRENGTH: 150 MILLIGRAM
     Route: 058
     Dates: start: 202307, end: 202307
  2. SKYRIZI [Suspect]
     Active Substance: RISANKIZUMAB-RZAA
     Dosage: TIME INTERVAL: TOTAL: LOADING DOSE?FORM STRENGTH: 150 MILLIGRAM
     Route: 058
     Dates: start: 202308, end: 202308
  3. SKYRIZI [Suspect]
     Active Substance: RISANKIZUMAB-RZAA
     Dosage: MAINTENANCE DOSE?FORM STRENGTH: 150 MILLIGRAM
     Route: 058
     Dates: start: 202311

REACTIONS (2)
  - Blood cholesterol increased [Unknown]
  - Back pain [Not Recovered/Not Resolved]
